FAERS Safety Report 8828065 (Version 1)
Quarter: 2012Q4

REPORT INFORMATION
  Report Type: 
  Country: JP (occurrence: JP)
  Receive Date: 20121008
  Receipt Date: 20121008
  Transmission Date: 20130627
  Serious: Yes (Other)
  Sender: FDA-Public Use
  Company Number: PHHY2012JP083666

PATIENT
  Age: 78 Year
  Sex: Female

DRUGS (8)
  1. TEGRETOL [Suspect]
     Indication: EPILEPSY
     Dosage: 400 mg, daily
     Route: 048
  2. SPIROPENT [Concomitant]
     Route: 048
  3. GLUBES [Concomitant]
     Route: 048
  4. OLMETEC [Concomitant]
     Route: 048
  5. LANSOPRAZOLE [Concomitant]
     Route: 048
  6. HERBESSOR R [Concomitant]
     Route: 048
  7. ITOROL [Concomitant]
     Route: 048
  8. CILOSTAZOL [Concomitant]
     Route: 048

REACTIONS (3)
  - Fall [Unknown]
  - Blood albumin decreased [Unknown]
  - Anticonvulsant drug level increased [Unknown]
